FAERS Safety Report 16852876 (Version 1)
Quarter: 2019Q3

REPORT INFORMATION
  Report Type: Spontaneous
  Country: US (occurrence: US)
  Receive Date: 20190925
  Receipt Date: 20190925
  Transmission Date: 20191005
  Serious: Yes (Hospitalization)
  Sender: FDA-Public Use
  Company Number: US-TEVA-2019-US-1110910

PATIENT
  Sex: Female

DRUGS (1)
  1. EPINEPHRINE 0.3MG AUTO-INJECT TEVA [Suspect]
     Active Substance: EPINEPHRINE
     Indication: HYPERSENSITIVITY
     Dosage: POTENCY : 0.3MG IN 0.3ML
     Route: 065
     Dates: start: 20190729

REACTIONS (2)
  - Device malfunction [Unknown]
  - Drug ineffective [Unknown]

NARRATIVE: CASE EVENT DATE: 20190729
